FAERS Safety Report 14677106 (Version 1)
Quarter: 2018Q1

REPORT INFORMATION
  Report Type: Report from Study
  Country: US (occurrence: US)
  Receive Date: 20180324
  Receipt Date: 20180324
  Transmission Date: 20180509
  Serious: Yes (Hospitalization)
  Sender: FDA-Public Use
  Company Number: US-MYLANLABS-2018M1016096

PATIENT
  Sex: Female
  Weight: 70 kg

DRUGS (1)
  1. GLATIRAMER ACETATE INJECTION [Suspect]
     Active Substance: GLATIRAMER ACETATE
     Indication: RELAPSING-REMITTING MULTIPLE SCLEROSIS
     Dosage: 40 MG, 3XW
     Route: 058
     Dates: start: 20180225, end: 20180307

REACTIONS (6)
  - Colitis [Unknown]
  - Diarrhoea [Unknown]
  - Weight decreased [Recovering/Resolving]
  - Dehydration [Unknown]
  - Loss of consciousness [Unknown]
  - Hypokalaemia [Recovering/Resolving]
